FAERS Safety Report 26191365 (Version 1)
Quarter: 2025Q4

REPORT INFORMATION
  Report Type: Spontaneous
  Country: US (occurrence: None)
  Receive Date: 20251219
  Receipt Date: 20251219
  Transmission Date: 20260117
  Serious: Yes (Other)
  Sender: FDA-CTU
  Company Number: None

PATIENT
  Age: 63 Year
  Sex: Female
  Weight: 69.85 kg

DRUGS (2)
  1. INJECTAFER [Suspect]
     Active Substance: FERRIC CARBOXYMALTOSE
  2. INFED [Suspect]
     Active Substance: IRON DEXTRAN

REACTIONS (3)
  - Hypophosphataemia [None]
  - Bone pain [None]
  - Asthenia [None]

NARRATIVE: CASE EVENT DATE: 20251112
